FAERS Safety Report 4670896-7 (Version None)
Quarter: 2005Q2

REPORT INFORMATION
  Report Type: 
  Country: None (occurrence: None)
  Receive Date: 20050523
  Receipt Date: 20050510
  Transmission Date: 20051028
  Serious: Yes (Life-Threatening, Hospitalization, Other)
  Sender: FDA-Public Use
  Company Number: 2005063933

PATIENT
  Age: 74 Year
  Sex: Male

DRUGS (12)
  1. ZITHROMAX [Suspect]
     Indication: ILL-DEFINED DISORDER
     Dosage: 500 MG (DAILY), ORAL
     Route: 048
     Dates: start: 20050301
  2. AMLODIPINE [Concomitant]
  3. ALMARL (AROTINOLOL HYDROCHLORIDE) [Concomitant]
  4. MEDICON (DEXTROMETHORPHAN  HYDROBROMIDE) [Concomitant]
  5. PL (PYRIDOXAL) [Concomitant]
  6. FAMOTIDINE [Concomitant]
  7. HERBAL PREPARATION (HERBAL PREPARATION) [Concomitant]
  8. JUZENTHAIHOTO (HERBAL EXTRACTS NOS) [Concomitant]
  9. SAIBOKU-TO (HERBAL EXTRACTS NOS) [Concomitant]
  10. MUCODYNE (CARBOCISTEINE) [Concomitant]
  11. ASVERIN [Concomitant]
  12. THEOPHYLLINE [Concomitant]

REACTIONS (1)
  - GASTRIC ULCER HAEMORRHAGE [None]
